FAERS Safety Report 12167434 (Version 1)
Quarter: 2016Q1

REPORT INFORMATION
  Report Type: Spontaneous
  Country: US (occurrence: None)
  Receive Date: 20160309
  Receipt Date: 20160309
  Transmission Date: 20160526
  Serious: No
  Sender: FDA-Public Use
  Company Number: None

PATIENT
  Age: 58 Year
  Sex: Male
  Weight: 108.86 kg

DRUGS (1)
  1. ROPINIROLE HCL ER 6 MG DR. REDDY^S [Suspect]
     Active Substance: ROPINIROLE HYDROCHLORIDE
     Indication: RESTLESS LEGS SYNDROME
     Dosage: 1 PILL IN MORNING, ONCE DAILY, TAKEN BY MOUTH
     Dates: start: 20160304, end: 20160307

REACTIONS (4)
  - Restless legs syndrome [None]
  - Product substitution issue [None]
  - Drug ineffective [None]
  - Condition aggravated [None]

NARRATIVE: CASE EVENT DATE: 20160305
